FAERS Safety Report 6709877-8 (Version None)
Quarter: 2010Q2

REPORT INFORMATION
  Report Type: 
  Country: None (occurrence: None)
  Receive Date: 20100503
  Receipt Date: 20100503
  Transmission Date: 20101027
  Serious: Yes (Other)
  Sender: FDA-Public Use
  Company Number: None

PATIENT
  Age: 8 Month
  Sex: Male
  Weight: 8.1647 kg

DRUGS (2)
  1. TYLENOL (CAPLET) [Suspect]
     Indication: NASOPHARYNGITIS
     Dosage: .8ML AS NEEDED PO
     Route: 048
     Dates: start: 20100201, end: 20100430
  2. TYLENOL (CAPLET) [Suspect]
     Indication: TEETHING
     Dosage: .8ML AS NEEDED PO
     Route: 048
     Dates: start: 20100201, end: 20100430

REACTIONS (2)
  - PRODUCT QUALITY ISSUE [None]
  - SOMNOLENCE [None]
